FAERS Safety Report 10083269 (Version 1)
Quarter: 2014Q2

REPORT INFORMATION
  Report Type: Spontaneous
  Country: None (occurrence: None)
  Receive Date: 20140416
  Receipt Date: 20140416
  Transmission Date: 20141212
  Serious: No
  Sender: FDA-Public Use
  Company Number: None

PATIENT
  Age: 10 Year
  Sex: Female
  Weight: 33.11 kg

DRUGS (1)
  1. PROHANCE [GADOTERIDOL] [Suspect]
     Indication: NUCLEAR MAGNETIC RESONANCE IMAGING
     Route: 042
     Dates: start: 20140407

REACTIONS (5)
  - Eye pain [None]
  - Conjunctivitis [None]
  - Blister [None]
  - Ocular hyperaemia [None]
  - Similar reaction on previous exposure to drug [None]
